FAERS Safety Report 8288970-5 (Version None)
Quarter: 2012Q2

REPORT INFORMATION
  Report Type: 
  Country: None (occurrence: None)
  Receive Date: 20120412
  Receipt Date: 20120328
  Transmission Date: 20120825
  Serious: Yes (Other)
  Sender: FDA-Public Use
  Company Number: JP-2012-14697

PATIENT
  Age: 81 Year
  Sex: Female

DRUGS (4)
  1. DOPAMINE HYDROCHLORIDE [Concomitant]
  2. LASIX [Concomitant]
  3. SAMSCA [Suspect]
     Indication: PLEURAL EFFUSION
     Dosage: 15 MG MILLIGRAM(S), QD, ORAL
     Route: 048
     Dates: start: 20110905, end: 20110910
  4. LASIX [Concomitant]

REACTIONS (1)
  - HYPERNATRAEMIA [None]
